FAERS Safety Report 20877590 (Version 1)
Quarter: 2022Q2

REPORT INFORMATION
  Report Type: Spontaneous
  Country: AU (occurrence: AU)
  Receive Date: 20220526
  Receipt Date: 20220526
  Transmission Date: 20220720
  Serious: Yes (Other)
  Sender: FDA-Public Use
  Company Number: AU-TEVA-2022-AU-2040955

PATIENT
  Age: 78 Year
  Sex: Female

DRUGS (17)
  1. AZILECT [Suspect]
     Active Substance: RASAGILINE MESYLATE
     Route: 065
  2. ATORVASTATIN [Suspect]
     Active Substance: ATORVASTATIN
     Route: 065
  3. CLOPIDOGREL [Suspect]
     Active Substance: CLOPIDOGREL BISULFATE
     Route: 065
  4. DICLOFENAC [Suspect]
     Active Substance: DICLOFENAC
     Route: 065
  5. INDERAL [Suspect]
     Active Substance: PROPRANOLOL HYDROCHLORIDE
     Route: 065
  6. IRBESARTAN [Suspect]
     Active Substance: IRBESARTAN
     Route: 065
  7. BENSERAZIDE HYDROCHLORIDE\LEVODOPA [Suspect]
     Active Substance: BENSERAZIDE HYDROCHLORIDE\LEVODOPA
     Route: 065
  8. MIRTAZAPINE [Suspect]
     Active Substance: MIRTAZAPINE
     Route: 065
  9. RABEPRAZOLE SODIUM [Suspect]
     Active Substance: RABEPRAZOLE SODIUM
     Route: 065
  10. ESOMEPRAZOLE [Concomitant]
     Active Substance: ESOMEPRAZOLE
  11. ASPIRIN [Concomitant]
     Active Substance: ASPIRIN
  12. PROPRANOLOL [Concomitant]
     Active Substance: PROPRANOLOL HYDROCHLORIDE
  13. VENLAFAXINE HYDROCHLORIDE [Concomitant]
     Active Substance: VENLAFAXINE HYDROCHLORIDE
  14. ROSUVASTATIN CALCIUM [Concomitant]
     Active Substance: ROSUVASTATIN CALCIUM
  15. LENGOUT [Concomitant]
  16. VITAMIN D [Concomitant]
     Active Substance: VITAMIN D NOS
  17. IRON [Concomitant]
     Active Substance: IRON
     Dosage: DOSE IS 3 WEEKLY

REACTIONS (4)
  - Dysarthria [Unknown]
  - Euphoric mood [Unknown]
  - Gait disturbance [Unknown]
  - Restlessness [Unknown]
